FAERS Safety Report 6516988-9 (Version None)
Quarter: 2009Q4

REPORT INFORMATION
  Report Type: 
  Country: None (occurrence: None)
  Receive Date: 20091223
  Receipt Date: 20091217
  Transmission Date: 20100525
  Serious: Yes (Other)
  Sender: FDA-Public Use
  Company Number: US-WYE-H12701609

PATIENT
  Age: 60 Year
  Sex: Female

DRUGS (1)
  1. PREMARIN [Suspect]
     Indication: OESTROGEN REPLACEMENT THERAPY
     Dosage: UNKNOWN FOR MANY YEARS; GRADUALLY REDUCED DOSE THEN STOPPED
     Route: 048
     Dates: start: 19890101, end: 20090101

REACTIONS (2)
  - BLINDNESS [None]
  - DRUG WITHDRAWAL SYNDROME [None]
